FAERS Safety Report 10509942 (Version 5)
Quarter: 2016Q3

REPORT INFORMATION
  Report Type: Spontaneous
  Country: BR (occurrence: BR)
  Receive Date: 20141010
  Receipt Date: 20160728
  Transmission Date: 20161109
  Serious: Yes (Other)
  Sender: FDA-Public Use
  Company Number: BR-AMGEN-BRASP2013076530

PATIENT
  Age: 65 Year
  Sex: Female
  Weight: 58 kg

DRUGS (7)
  1. CHLORTALIDONE [Concomitant]
     Active Substance: CHLORTHALIDONE
     Dosage: STRENGTH 25MG, 1X/DAY
  2. OSCAL D [Concomitant]
     Active Substance: CALCIUM CARBONATE\CHOLECALCIFEROL
     Dosage: (STRENGTH 500MG), 2X/DAY
  3. ATORVASTATIN CALCIUM. [Concomitant]
     Active Substance: ATORVASTATIN CALCIUM
     Dosage: STRENGTH 10MG, 1X/DAY
     Dates: start: 2012
  4. ENBREL [Suspect]
     Active Substance: ETANERCEPT
     Indication: RHEUMATOID ARTHRITIS
     Dosage: 50 MG, ONCE WEEKLY (EVERY THURSDAY)
     Route: 058
     Dates: start: 201308
  5. CHLORTALIDONE [Concomitant]
     Active Substance: CHLORTHALIDONE
     Dosage: STRENGTH 25MG, 1X/DAY
  6. ENALAPRIL MALEATE. [Concomitant]
     Active Substance: ENALAPRIL MALEATE
     Dosage: STENGTH 10MG, 1X/DAY
  7. ENALAPRIL MALEATE. [Concomitant]
     Active Substance: ENALAPRIL MALEATE
     Dosage: STENGTH 10MG, 1X/DAY

REACTIONS (5)
  - Injection site pruritus [Recovering/Resolving]
  - Joint injury [Recovering/Resolving]
  - Injection site swelling [Recovering/Resolving]
  - Mobility decreased [Not Recovered/Not Resolved]
  - Injection site erythema [Recovering/Resolving]

NARRATIVE: CASE EVENT DATE: 201310
